FAERS Safety Report 7988862-2 (Version None)
Quarter: 2011Q4

REPORT INFORMATION
  Report Type: 
  Country: None (occurrence: None)
  Receive Date: 20111219
  Receipt Date: 20111209
  Transmission Date: 20120403
  Serious: Yes (Other)
  Sender: FDA-Public Use
  Company Number: US-JNJFOC-20111204648

PATIENT
  Sex: Female
  Weight: 97 kg

DRUGS (10)
  1. FUROSEMIDE [Concomitant]
  2. JANUVIA [Concomitant]
  3. LISINOPRIL [Concomitant]
  4. SIMVASTATIN [Concomitant]
  5. MELOXICAM [Concomitant]
  6. XARELTO [Suspect]
     Indication: KNEE ARTHROPLASTY
     Route: 065
     Dates: start: 20111129, end: 20111130
  7. SYNTHROID [Concomitant]
  8. VITAMIN D [Concomitant]
  9. CARVEDILOL [Concomitant]
  10. ASPIRIN [Concomitant]

REACTIONS (2)
  - PULMONARY EMBOLISM [None]
  - HAEMOGLOBIN DECREASED [None]
